FAERS Safety Report 8619942-6 (Version None)
Quarter: 2012Q3

REPORT INFORMATION
  Report Type: 
  Country: None (occurrence: None)
  Receive Date: 20120824
  Receipt Date: 20120823
  Transmission Date: 20120928
  Serious: Yes (Death, Other)
  Sender: FDA-Public Use
  Company Number: US-BAYER-2011-060946

PATIENT
  Sex: Male

DRUGS (17)
  1. GADOLINIUM IN UNSPECIFIED DRUG [Suspect]
     Indication: NUCLEAR MAGNETIC RESONANCE IMAGING
     Dosage: UNK, ONCE
     Dates: start: 20060927, end: 20060927
  2. NEPHROCAPS [Concomitant]
  3. GABAPENTIN [Concomitant]
  4. PHOSLO [Concomitant]
  5. TOPROL-XL [Concomitant]
  6. REGLAN [Concomitant]
  7. GADOLINIUM IN UNSPECIFIED DRUG [Suspect]
     Dosage: UNK UNK, ONCE
     Dates: start: 20031128, end: 20031128
  8. MAGNEVIST [Suspect]
     Indication: NUCLEAR MAGNETIC RESONANCE IMAGING
     Dosage: 20 ML, ONCE
     Route: 042
     Dates: start: 20061120, end: 20061120
  9. GADOLINIUM IN UNSPECIFIED DRUG [Suspect]
  10. WARFARIN SODIUM [Concomitant]
  11. ALLOPURINOL [Concomitant]
  12. INSULIN [Concomitant]
  13. PREVACID [Concomitant]
  14. GADOLINIUM IN UNSPECIFIED DRUG [Suspect]
     Dosage: UNK
     Dates: start: 20060201, end: 20060201
  15. SIMVASTATIN [Concomitant]
  16. MAGNEVIST [Suspect]
     Indication: PANCREATIC MASS
  17. GADOLINIUM IN UNSPECIFIED DRUG [Suspect]
     Dosage: UNK
     Route: 042
     Dates: start: 20050806

REACTIONS (15)
  - JOINT CONTRACTURE [None]
  - NEPHROGENIC SYSTEMIC FIBROSIS [None]
  - MUSCULOSKELETAL STIFFNESS [None]
  - GRIP STRENGTH DECREASED [None]
  - MUSCLE RIGIDITY [None]
  - MUSCULAR WEAKNESS [None]
  - BALANCE DISORDER [None]
  - ASTHENIA [None]
  - SKIN INDURATION [None]
  - OEDEMA [None]
  - MOBILITY DECREASED [None]
  - DEPRESSION [None]
  - HYPOAESTHESIA [None]
  - GAIT DISTURBANCE [None]
  - SKIN DISORDER [None]
